FAERS Safety Report 8164046-2 (Version None)
Quarter: 2012Q1

REPORT INFORMATION
  Report Type: 
  Country: None (occurrence: None)
  Receive Date: 20120224
  Receipt Date: 20120216
  Transmission Date: 20120608
  Serious: Yes (Other)
  Sender: FDA-Public Use
  Company Number: PHHY2012DE002970

PATIENT
  Sex: Male

DRUGS (1)
  1. RASILEZ [Suspect]
     Dates: start: 20080101

REACTIONS (1)
  - RENAL FAILURE [None]
